FAERS Safety Report 7609543 (Version 5)
Quarter: 2014Q1

REPORT INFORMATION
  Report Type: Spontaneous
  Country: US (occurrence: US)
  Receive Date: 20100928
  Receipt Date: 20140115
  Transmission Date: 20141002
  Serious: Yes (Hospitalization, Other)
  Sender: FDA-Public Use
  Company Number: US-BAYER-201034608NA

PATIENT
  Age: 33 Year
  Sex: Female
  Weight: 61 kg

DRUGS (2)
  1. YAZ [Suspect]
     Dosage: UNK
     Route: 048
     Dates: start: 200706, end: 200812
  2. ALLEGRA-D 12 HOUR [Concomitant]
     Indication: PRODUCT USED FOR UNKNOWN INDICATION

REACTIONS (5)
  - Gallbladder disorder [None]
  - Muscle spasms [None]
  - Cholelithiasis [None]
  - Cholecystitis chronic [None]
  - Biliary dyskinesia [None]
